FAERS Safety Report 4488026-3 (Version None)
Quarter: 2004Q4

REPORT INFORMATION
  Report Type: 
  Country: None (occurrence: None)
  Receive Date: 20041028
  Receipt Date: 20041013
  Transmission Date: 20050328
  Serious: Yes (Life-Threatening, Hospitalization, Disabling, Other)
  Sender: FDA-Public Use
  Company Number: HK-MERCK-0410HKG00010

PATIENT
  Age: 48 Year
  Sex: Male

DRUGS (3)
  1. VIOXX [Suspect]
     Indication: ARTHRALGIA
     Route: 048
     Dates: start: 20040901, end: 20040925
  2. [COMPOSITION UNSPECIFIED] [Concomitant]
     Indication: DIARRHOEA
     Route: 048
     Dates: start: 20041001
  3. VIOXX [Suspect]
     Indication: SYNOVITIS
     Route: 048
     Dates: start: 20040901, end: 20040925

REACTIONS (1)
  - ISCHAEMIC STROKE [None]
